FAERS Safety Report 6147014-1 (Version None)
Quarter: 2009Q2

REPORT INFORMATION
  Report Type: 
  Country: None (occurrence: None)
  Receive Date: 20090403
  Receipt Date: 20090324
  Transmission Date: 20091009
  Serious: Yes (Other)
  Sender: FDA-Public Use
  Company Number: 1-17907389

PATIENT
  Sex: Male

DRUGS (2)
  1. FENTANYL-50 [Suspect]
     Indication: INTERVERTEBRAL DISC DISORDER
     Dosage: 50 MCG/HR, TRANSDERMAL
     Route: 062
  2. STILNOCT (ZOLPIDEM TARTRATE) [Concomitant]

REACTIONS (5)
  - DEPRESSION [None]
  - DRUG WITHDRAWAL SYNDROME [None]
  - INCORRECT DOSE ADMINISTERED [None]
  - PAIN [None]
  - PRODUCT QUALITY ISSUE [None]
